FAERS Safety Report 9210835 (Version 1)
Quarter: 2013Q2

REPORT INFORMATION
  Report Type: Spontaneous
  Country: US (occurrence: US)
  Receive Date: 20130404
  Receipt Date: 20130404
  Transmission Date: 20140414
  Serious: Yes (Death, Other)
  Sender: FDA-Public Use
  Company Number: US-ELI_LILLY_AND_COMPANY-US201303010168

PATIENT
  Age: 50 Year
  Sex: Male

DRUGS (2)
  1. GEMCITABINE HYDROCHLORIDE [Suspect]
     Indication: GALLBLADDER CANCER
  2. CISPLATIN [Concomitant]
     Indication: GALLBLADDER CANCER
     Dosage: UNK

REACTIONS (6)
  - Tumour lysis syndrome [Fatal]
  - Urosepsis [Unknown]
  - Deep vein thrombosis [Unknown]
  - Pulmonary embolism [Unknown]
  - Renal failure acute [None]
  - Haemodialysis [None]
